FAERS Safety Report 24073544 (Version 1)
Quarter: 2024Q3

REPORT INFORMATION
  Report Type: Spontaneous
  Country: CH (occurrence: CH)
  Receive Date: 20240710
  Receipt Date: 20240710
  Transmission Date: 20241017
  Serious: Yes (Hospitalization, Other)
  Sender: SANDOZ
  Company Number: None

PATIENT
  Age: 52 Year
  Sex: Female
  Weight: 81.4 kg

DRUGS (16)
  1. CEFTRIAXONE [Suspect]
     Active Substance: CEFTRIAXONE\CEFTRIAXONE SODIUM
     Indication: Pneumonia
     Dosage: UNK
     Route: 065
     Dates: start: 20240420, end: 20240425
  2. CLARITHROMYCIN [Suspect]
     Active Substance: CLARITHROMYCIN
     Indication: Pneumonia
     Route: 065
     Dates: start: 20240420, end: 20240425
  3. CLOZAPINE [Suspect]
     Active Substance: CLOZAPINE
     Indication: Acute psychosis
     Dosage: CLOZAPINE (CLOPIN ECO) 25 MG PO: GRADUALLY  INCREASED SINCE MARCH 28, 2024, 100 MG/DAY UNTIL  MAY 6,
     Route: 048
     Dates: start: 20240328, end: 20240506
  4. CLOZAPINE [Suspect]
     Active Substance: CLOZAPINE
     Dosage: FURTHER TAPERING (OFF) PLANNED
     Route: 048
     Dates: start: 20240512
  5. CLOZAPINE [Suspect]
     Active Substance: CLOZAPINE
     Dosage: 50 MG N/A DOSE EVERY 1 DAY
     Route: 048
     Dates: start: 20240508, end: 20240511
  6. CLOZAPINE [Suspect]
     Active Substance: CLOZAPINE
     Dosage: 75 MG N/A DOSE EVERY 1 DAY
     Route: 048
     Dates: start: 20240507, end: 20240507
  7. CIRKULIN VALERIANA AND HOP [Concomitant]
     Indication: Product used for unknown indication
     Dosage: (1 {DF})
     Route: 048
  8. CLOZAPINE [Concomitant]
     Active Substance: CLOZAPINE
     Indication: Product used for unknown indication
     Dosage: (1 {DF})
     Route: 048
  9. DAFALGAN [Concomitant]
     Active Substance: ACETAMINOPHEN
     Indication: Product used for unknown indication
     Dosage: 500 MG N/A DOSE EVERY N/A AS NECESSARY
     Route: 048
  10. HYALURONATE SODIUM [Concomitant]
     Active Substance: HYALURONATE SODIUM
     Indication: Product used for unknown indication
     Dosage: (1 [DRP])
     Route: 001
  11. VALPROATE SODIUM [Concomitant]
     Active Substance: VALPROATE SODIUM
     Indication: Product used for unknown indication
     Dosage: 1000 MG N/A DOSE EVERY 12 HOUR
     Route: 048
  12. QUETIAPINE FUMARATE [Concomitant]
     Active Substance: QUETIAPINE FUMARATE
     Indication: Product used for unknown indication
     Dosage: 25 MG N/A DOSE EVERY N/A AS NECESSARY
     Route: 048
  13. SALVIA WILD [Concomitant]
     Indication: Product used for unknown indication
     Dosage: (20 [DRP])
     Route: 048
  14. TORSEMIDE [Concomitant]
     Active Substance: TORSEMIDE
     Indication: Product used for unknown indication
     Dosage: 10 MG N/A DOSE EVERY 1 DAY
     Route: 048
     Dates: start: 20240419
  15. HERBALS [Concomitant]
     Active Substance: HERBALS
     Indication: Product used for unknown indication
     Dosage: (1 {DF})
     Route: 048
  16. CHOLECALCIFEROL [Concomitant]
     Active Substance: CHOLECALCIFEROL
     Indication: Product used for unknown indication
     Dosage: UNK
     Route: 065

REACTIONS (6)
  - Pancreatic failure [Not Recovered/Not Resolved]
  - C-reactive protein increased [Recovering/Resolving]
  - Type 2 diabetes mellitus [Not Recovered/Not Resolved]
  - Pancreatitis acute [Recovering/Resolving]
  - Diarrhoea [Recovered/Resolved]
  - Colitis [Unknown]

NARRATIVE: CASE EVENT DATE: 20240101
